FAERS Safety Report 11699998 (Version 1)
Quarter: 2015Q4

REPORT INFORMATION
  Report Type: Spontaneous
  Country: US (occurrence: None)
  Receive Date: 20151104
  Receipt Date: 20151104
  Transmission Date: 20160304
  Serious: No
  Sender: FDA-Public Use
  Company Number: None

PATIENT
  Age: 67 Year
  Sex: Female
  Weight: 65.77 kg

DRUGS (6)
  1. TYLENOL ARTHRITIS PAIN [Concomitant]
     Active Substance: ACETAMINOPHEN
  2. SIMVASTATIN. [Concomitant]
     Active Substance: SIMVASTATIN
  3. BENADRYL [Concomitant]
     Active Substance: DIPHENHYDRAMINE HYDROCHLORIDE
  4. SMZ/TMP DS 800-160 [Suspect]
     Active Substance: SULFAMETHOXAZOLE\TRIMETHOPRIM
     Indication: URINARY TRACT INFECTION
     Route: 048
     Dates: start: 20151007, end: 20151011
  5. LORAZEPAM. [Concomitant]
     Active Substance: LORAZEPAM
  6. AZO CRANBERRY PILLS [Concomitant]

REACTIONS (6)
  - Abdominal pain upper [None]
  - Diarrhoea [None]
  - Hyperhidrosis [None]
  - Chills [None]
  - Pyrexia [None]
  - Dyspnoea [None]

NARRATIVE: CASE EVENT DATE: 20151011
